FAERS Safety Report 21702235 (Version 1)
Quarter: 2022Q4

REPORT INFORMATION
  Report Type: Report from Study
  Country: US (occurrence: US)
  Receive Date: 20221208
  Receipt Date: 20221208
  Transmission Date: 20230113
  Serious: Yes (Death, Other)
  Sender: FDA-Public Use
  Company Number: US-ACADIA PHARMACEUTICALS INC.-ACA-2022-PIM-003987

PATIENT
  Age: 75 Year
  Sex: Male

DRUGS (7)
  1. NUPLAZID [Suspect]
     Active Substance: PIMAVANSERIN TARTRATE
     Indication: Parkinson^s disease
     Dosage: 34 MILLIGRAM, QD
     Route: 048
     Dates: start: 20220822, end: 20221114
  2. DROXIDOPA [Concomitant]
     Active Substance: DROXIDOPA
  3. MEMANTINE [Concomitant]
     Active Substance: MEMANTINE
  4. RIVASTIGMINE [Concomitant]
     Active Substance: RIVASTIGMINE
  5. CARBIDOPA\LEVODOPA [Concomitant]
     Active Substance: CARBIDOPA\LEVODOPA
  6. DONEPEZIL [Concomitant]
     Active Substance: DONEPEZIL
  7. QUETIAPINE [Concomitant]
     Active Substance: QUETIAPINE

REACTIONS (1)
  - Death [Recovered/Resolved]

NARRATIVE: CASE EVENT DATE: 20221114
